FAERS Safety Report 9292646 (Version 1)
Quarter: 2013Q2

REPORT INFORMATION
  Report Type: Spontaneous
  Country: US (occurrence: None)
  Receive Date: 20130515
  Receipt Date: 20130515
  Transmission Date: 20140414
  Serious: Yes (Hospitalization, Other)
  Sender: FDA-Public Use
  Company Number: None

PATIENT
  Age: 66 Year
  Sex: Female
  Weight: 72.58 kg

DRUGS (1)
  1. EVISTA [Suspect]
     Indication: BREAST CANCER
     Dosage: 60MG  ONCE A DAY  ORAL
     Route: 048
     Dates: start: 1990

REACTIONS (1)
  - Deep vein thrombosis [None]
